FAERS Safety Report 8796406 (Version 1)
Quarter: 2012Q4

REPORT INFORMATION
  Report Type: 
  Country: KR (occurrence: KR)
  Receive Date: 20120919
  Receipt Date: 20120919
  Transmission Date: 20130627
  Serious: Yes (Hospitalization)
  Sender: FDA-Public Use
  Company Number: KR-WATSON-2012-15841

PATIENT
  Age: 46 Year
  Sex: Female

DRUGS (5)
  1. PREDNISOLONE (UNKNOWN) [Suspect]
     Indication: LUPUS NEPHRITIS
     Dosage: 1 mg/kg, unknown
     Route: 048
  2. PREDNISOLONE (UNKNOWN) [Suspect]
     Dosage: 5 mg/kg, UNK
  3. PREDNISOLONE (UNKNOWN) [Suspect]
     Dosage: 5 mg, daily
     Route: 048
  4. METHYLPREDNISOLONE [Suspect]
     Indication: LUPUS NEPHRITIS
     Dosage: 1 g, UNK
     Route: 065
  5. CYCLOPHOSPHAMIDE [Suspect]
     Indication: LUPUS NEPHRITIS
     Dosage: 5.75 mg, over 15 months
     Route: 065

REACTIONS (4)
  - Intracranial aneurysm [Recovered/Resolved]
  - Aspergillosis [Recovered/Resolved]
  - Sinusitis aspergillus [Recovered/Resolved]
  - Epistaxis [Recovered/Resolved]
